FAERS Safety Report 20709332 (Version 10)
Quarter: 2024Q1

REPORT INFORMATION
  Report Type: Report from Study
  Country: CL (occurrence: CL)
  Receive Date: 20220414
  Receipt Date: 20240116
  Transmission Date: 20240410
  Serious: Yes (Hospitalization, Disabling, Other)
  Sender: FDA-Public Use
  Company Number: CL-NOVARTISPH-NVSC2022CL071865

PATIENT
  Age: 62 Year
  Sex: Female

DRUGS (12)
  1. COSENTYX [Suspect]
     Active Substance: SECUKINUMAB
     Indication: Psoriatic arthropathy
     Dosage: 150 MG, QMO (STOPPED 5 MONTHS AGO)
     Route: 058
     Dates: start: 202001
  2. COSENTYX [Suspect]
     Active Substance: SECUKINUMAB
     Dosage: 300 MG, QMO (STARTED 5 MONTHS AGO)
     Route: 058
  3. COSENTYX [Suspect]
     Active Substance: SECUKINUMAB
     Dosage: 150 MG, QMO
     Route: 058
     Dates: start: 202002
  4. COSENTYX [Suspect]
     Active Substance: SECUKINUMAB
     Dosage: 300 MG, QMO
     Route: 058
  5. COSENTYX [Suspect]
     Active Substance: SECUKINUMAB
     Dosage: UNK
     Route: 065
     Dates: start: 20220225
  6. COSENTYX [Suspect]
     Active Substance: SECUKINUMAB
     Dosage: 300 MG, QMO
     Route: 058
     Dates: start: 20220301
  7. COSENTYX [Suspect]
     Active Substance: SECUKINUMAB
     Dosage: 300 MG
     Route: 065
     Dates: start: 20221004
  8. COSENTYX [Suspect]
     Active Substance: SECUKINUMAB
     Dosage: 300 MG
     Route: 065
     Dates: start: 20221210
  9. COSENTYX [Suspect]
     Active Substance: SECUKINUMAB
     Dosage: 300 MG
     Route: 065
     Dates: start: 20230222
  10. CELEBRA [Concomitant]
     Active Substance: CELECOXIB
     Indication: Product used for unknown indication
     Dosage: UNK
     Route: 065
  11. OMEPRAZOLE [Concomitant]
     Active Substance: OMEPRAZOLE
     Indication: Product used for unknown indication
     Dosage: UNK
     Route: 065
  12. ACETAMINOPHEN [Concomitant]
     Active Substance: ACETAMINOPHEN
     Indication: Product used for unknown indication
     Dosage: UNK
     Route: 065

REACTIONS (22)
  - Diverticulitis [Unknown]
  - Movement disorder [Recovering/Resolving]
  - Hypothyroidism [Unknown]
  - Arterial occlusive disease [Unknown]
  - COVID-19 [Unknown]
  - Pyrexia [Unknown]
  - Illness [Unknown]
  - Malaise [Unknown]
  - Hyperchlorhydria [Unknown]
  - Speech disorder [Unknown]
  - Dysphonia [Unknown]
  - Memory impairment [Unknown]
  - Nasopharyngitis [Unknown]
  - Cough [Unknown]
  - Chest discomfort [Unknown]
  - Headache [Unknown]
  - Intervertebral disc protrusion [Unknown]
  - Productive cough [Unknown]
  - Gait disturbance [Unknown]
  - Peripheral swelling [Recovering/Resolving]
  - Inappropriate schedule of product administration [Unknown]
  - Drug ineffective [Unknown]

NARRATIVE: CASE EVENT DATE: 20220305
